FAERS Safety Report 25472665 (Version 1)
Quarter: 2025Q2

REPORT INFORMATION
  Report Type: Spontaneous
  Country: US (occurrence: None)
  Receive Date: 20250617
  Receipt Date: 20250617
  Transmission Date: 20250716
  Serious: Yes (Other)
  Sender: FDA-CTU
  Company Number: None

PATIENT
  Age: 40 Year
  Sex: Male
  Weight: 62.6 kg

DRUGS (11)
  1. CORTICOTROPIN [Suspect]
     Active Substance: CORTICOTROPIN
     Indication: Multiple sclerosis
     Route: 058
  2. Vitamin D3 Oral Tablet 25 MCG (1000 [Concomitant]
  3. Gabapentin Oral Capsule 400 MG [Concomitant]
  4. Fioricet Oral Capsule 50-300-40 MG [Concomitant]
  5. clonazePAM Oral Tablet 1 MG [Concomitant]
  6. Zinc Gluconate Oral Tablet 50 MG [Concomitant]
  7. Vitamin C-Rose Hips Oral Tablet 100 [Concomitant]
  8. Vitamin B12 Oral Tablet Extended Re [Concomitant]
  9. Pepcid Oral Tablet 40 MG [Concomitant]
  10. Carvedilol Oral Tablet 3.125 MG [Concomitant]
  11. Lisinopril Oral Tablet 5 MG [Concomitant]

REACTIONS (10)
  - Chest discomfort [None]
  - Tachycardia [None]
  - Fatigue [None]
  - Asthenia [None]
  - Depression [None]
  - Temperature intolerance [None]
  - Sexual dysfunction [None]
  - Visual impairment [None]
  - Sleep disorder [None]
  - Hemiparesis [None]

NARRATIVE: CASE EVENT DATE: 20250617
